FAERS Safety Report 20053106 (Version 1)
Quarter: 2021Q4

REPORT INFORMATION
  Report Type: Report from Study
  Country: EG (occurrence: EG)
  Receive Date: 20211110
  Receipt Date: 20211110
  Transmission Date: 20220303
  Serious: Yes (Other)
  Sender: FDA-Public Use
  Company Number: EG-NOVARTISPH-NVSC2021EG254659

PATIENT
  Age: 44 Year
  Sex: Female

DRUGS (1)
  1. GILENYA [Suspect]
     Active Substance: FINGOLIMOD HYDROCHLORIDE
     Indication: Multiple sclerosis
     Dosage: 0.5 MG, QD
     Route: 048
     Dates: start: 2016, end: 201810

REACTIONS (4)
  - Central nervous system lesion [Unknown]
  - Multiple sclerosis relapse [Recovered/Resolved]
  - Hypoaesthesia [Recovered/Resolved]
  - Product dispensing issue [Recovered/Resolved]

NARRATIVE: CASE EVENT DATE: 20181001
